FAERS Safety Report 9115696 (Version 1)
Quarter: 2013Q1

REPORT INFORMATION
  Report Type: Spontaneous
  Country: US (occurrence: None)
  Receive Date: 20130221
  Receipt Date: 20130221
  Transmission Date: 20140127
  Serious: Yes (Life-Threatening, Congenital Anomaly)
  Sender: FDA-Public Use
  Company Number: None

PATIENT
  Age: 32 Year
  Sex: Female
  Weight: 88.45 kg

DRUGS (1)
  1. HALDOL D [Suspect]
     Indication: PSYCHOTIC DISORDER
     Dosage: 200MG  IM 4WIS BUTTOX
     Route: 030
     Dates: start: 201207, end: 201302

REACTIONS (2)
  - Convulsion [None]
  - Exposure during pregnancy [None]
